FAERS Safety Report 5406851-9 (Version None)
Quarter: 2007Q3

REPORT INFORMATION
  Report Type: 
  Country: None (occurrence: None)
  Receive Date: 20070807
  Receipt Date: 20070731
  Transmission Date: 20080115
  Serious: Yes (Hospitalization)
  Sender: FDA-Public Use
  Company Number: DE-BRISTOL-MYERS SQUIBB COMPANY-13866496

PATIENT
  Age: 74 Year
  Sex: Male

DRUGS (12)
  1. CETUXIMAB [Suspect]
     Indication: NON-SMALL CELL LUNG CANCER
     Dosage: STUDY DRUG START DATE-08MAY07
     Route: 042
     Dates: start: 20070723
  2. CARBOPLATIN [Suspect]
     Indication: NON-SMALL CELL LUNG CANCER
     Dosage: STUDY DRUG START DATE-08MAY07
     Route: 042
     Dates: start: 20070723
  3. DOCETAXEL [Suspect]
     Indication: NON-SMALL CELL LUNG CANCER
     Dosage: STUDY DRUG START DATE-08MAY07
     Route: 042
     Dates: start: 20070723
  4. TORSEMIDE [Concomitant]
     Route: 048
  5. ACC [Concomitant]
     Route: 048
  6. UROXATRAL [Concomitant]
  7. QUERTO [Concomitant]
  8. ALLOPURINOL [Concomitant]
     Route: 048
  9. DECORTIN [Concomitant]
     Route: 048
  10. NEXIUM [Concomitant]
     Route: 048
  11. TAVOR [Concomitant]
     Route: 048
  12. POTASSIUM CHLORIDE [Concomitant]
     Route: 048

REACTIONS (4)
  - BONE MARROW FAILURE [None]
  - ELECTROLYTE IMBALANCE [None]
  - HYPOKALAEMIA [None]
  - NEUTROPENIA [None]
